FAERS Safety Report 7604561-0 (Version None)
Quarter: 2011Q3

REPORT INFORMATION
  Report Type: 
  Country: None (occurrence: None)
  Receive Date: 20110712
  Receipt Date: 20110630
  Transmission Date: 20111222
  Serious: Yes (Hospitalization, Other)
  Sender: FDA-Public Use
  Company Number: US-ELI_LILLY_AND_COMPANY-US201107001842

PATIENT
  Sex: Female

DRUGS (6)
  1. RALOXIFENE HYDROCHLORIDE [Concomitant]
     Dosage: 60 MG, QD
  2. PRILOSEC [Concomitant]
     Indication: GASTROOESOPHAGEAL REFLUX DISEASE
     Dosage: UNK, QD
  3. LEVOTHYROXINE SODIUM [Concomitant]
  4. TUMS                               /00193601/ [Concomitant]
  5. FORTEO [Suspect]
     Indication: OSTEOPOROSIS
     Dosage: 20 UG, QD
     Route: 065
  6. VITAMIN D [Concomitant]

REACTIONS (2)
  - FALL [None]
  - PELVIC FRACTURE [None]
